FAERS Safety Report 26080462 (Version 1)
Quarter: 2025Q4

REPORT INFORMATION
  Report Type: Spontaneous
  Country: KR (occurrence: KR)
  Receive Date: 20251124
  Receipt Date: 20251124
  Transmission Date: 20260117
  Serious: Yes (Other)
  Sender: SANOFI AVENTIS
  Company Number: KR-ASTELLAS-2025-AER-062521

PATIENT
  Age: 78 Year
  Sex: Female

DRUGS (4)
  1. TAMSULOSIN HYDROCHLORIDE [Suspect]
     Active Substance: TAMSULOSIN HYDROCHLORIDE
     Indication: Cystitis
     Dosage: 0.2 MG, QD (ONE TABLET ONCE DAILY)
     Route: 048
     Dates: start: 202510
  2. TAMSULOSIN HYDROCHLORIDE [Suspect]
     Active Substance: TAMSULOSIN HYDROCHLORIDE
     Dosage: 0.4 MG, QD (TWO TABLETS A DAY)
     Route: 065
     Dates: start: 20251113
  3. ESCHERICHIA COLI [Concomitant]
     Active Substance: ESCHERICHIA COLI
     Indication: Product used for unknown indication
     Dosage: UNK
     Route: 065
  4. Uninechol [Concomitant]
     Indication: Dysuria
     Dosage: UNK
     Route: 065

REACTIONS (7)
  - Foreign body in throat [Not Recovered/Not Resolved]
  - Eructation [Unknown]
  - Urine output increased [Unknown]
  - Wrong technique in product usage process [Unknown]
  - Off label use [Unknown]
  - Off label use [Unknown]
  - Drug ineffective for unapproved indication [Unknown]

NARRATIVE: CASE EVENT DATE: 20250101
